FAERS Safety Report 8402313-5 (Version None)
Quarter: 2012Q2

REPORT INFORMATION
  Report Type: 
  Country: None (occurrence: None)
  Receive Date: 20120601
  Receipt Date: 20120521
  Transmission Date: 20120825
  Serious: Yes (Other)
  Sender: FDA-Public Use
  Company Number: US-BRISTOL-MYERS SQUIBB COMPANY-16648776

PATIENT
  Age: 16 Year
  Sex: Female

DRUGS (1)
  1. WARFARIN SODIUM [Suspect]

REACTIONS (2)
  - ANTICOAGULATION DRUG LEVEL BELOW THERAPEUTIC [None]
  - TRANSVERSE SINUS THROMBOSIS [None]
